FAERS Safety Report 16699932 (Version 1)
Quarter: 2019Q3

REPORT INFORMATION
  Report Type: Spontaneous
  Country: US (occurrence: US)
  Receive Date: 20190813
  Receipt Date: 20190813
  Transmission Date: 20191004
  Serious: No
  Sender: FDA-Public Use
  Company Number: US-SPROUT PHARMACEUTICALS, INC.-2019SP000065

PATIENT
  Sex: Female
  Weight: 78.09 kg

DRUGS (2)
  1. OSPHENA [Concomitant]
     Active Substance: OSPEMIFENE
     Indication: VULVOVAGINAL DRYNESS
     Dosage: 1 TABLET ONCE DAILY
     Route: 048
     Dates: start: 20190328
  2. ADDYI [Suspect]
     Active Substance: FLIBANSERIN
     Indication: LIBIDO DECREASED
     Dosage: 1 TABLET BY MOUTH ONCE DAILY AT NIGHT
     Route: 048
     Dates: start: 2019

REACTIONS (3)
  - Nausea [Recovered/Resolved]
  - Blood pressure decreased [Recovered/Resolved]
  - Dizziness [Recovered/Resolved]

NARRATIVE: CASE EVENT DATE: 2019
